FAERS Safety Report 6622313-5 (Version None)
Quarter: 2010Q1

REPORT INFORMATION
  Report Type: 
  Country: None (occurrence: None)
  Receive Date: 20100310
  Receipt Date: 20100303
  Transmission Date: 20100710
  Serious: Yes (Hospitalization)
  Sender: FDA-Public Use
  Company Number: US-WYE-H13885710

PATIENT
  Sex: Female

DRUGS (2)
  1. TORISEL [Suspect]
     Dosage: UNKNOWN
     Route: 042
  2. CETUXIMAB [Suspect]
     Dosage: UNKNOWN

REACTIONS (2)
  - CANDIDIASIS [None]
  - DEHYDRATION [None]
